FAERS Safety Report 15940483 (Version 1)
Quarter: 2019Q1

REPORT INFORMATION
  Report Type: Spontaneous
  Country: FR (occurrence: FR)
  Receive Date: 20190208
  Receipt Date: 20190208
  Transmission Date: 20190417
  Serious: Yes (Hospitalization, Other)
  Sender: FDA-Public Use
  Company Number: FR-MYLANLABS-2019M1011830

PATIENT
  Age: 74 Year
  Sex: Male

DRUGS (7)
  1. BISOPROLOL [Concomitant]
     Active Substance: BISOPROLOL
  2. LUMIGAN [Concomitant]
     Active Substance: BIMATOPROST
  3. LEVETIRACETAM MYLAN 500 MG COMPRIM?S PELLICUL?S [Suspect]
     Active Substance: LEVETIRACETAM
     Indication: EPILEPSY
     Dosage: 2 DOSAGE FORM, QD
     Dates: start: 2017
  4. RAMIPRIL. [Concomitant]
     Active Substance: RAMIPRIL
  5. NOVORAPID [Concomitant]
     Active Substance: INSULIN ASPART
  6. AZARGA [Concomitant]
     Active Substance: BRINZOLAMIDE\TIMOLOL MALEATE
  7. LEVEMIR [Concomitant]
     Active Substance: INSULIN DETEMIR

REACTIONS (2)
  - Fall [Unknown]
  - Pancytopenia [Unknown]

NARRATIVE: CASE EVENT DATE: 2019
